FAERS Safety Report 7393171-9 (Version None)
Quarter: 2011Q2

REPORT INFORMATION
  Report Type: 
  Country: None (occurrence: None)
  Receive Date: 20110404
  Receipt Date: 20110124
  Transmission Date: 20111010
  Serious: Yes (Life-Threatening, Hospitalization, Other)
  Sender: FDA-Public Use
  Company Number: US-BAYER-201036845NA

PATIENT
  Age: 68 Year
  Sex: Male
  Weight: 74.84 kg

DRUGS (12)
  1. PEPCID [Concomitant]
  2. ROBITUSSIN PE [Concomitant]
     Route: 048
  3. ACYCLOVIR [Concomitant]
  4. ALBUTEROL [Concomitant]
     Route: 055
  5. AVELOX [Suspect]
     Indication: PRODUCTIVE COUGH
     Dosage: UNK
     Route: 048
  6. AVELOX [Suspect]
     Indication: WHEEZING
  7. PRILOSEC [Concomitant]
     Route: 048
  8. FLONASE [Concomitant]
     Route: 045
  9. ADVAIR DISKUS 100/50 [Concomitant]
     Dosage: 250/50
     Route: 055
  10. AVELOX [Suspect]
     Indication: DYSPNOEA
  11. VALIUM [Concomitant]
     Dosage: 5 MG, HS
     Route: 048
  12. ASPIRIN [Concomitant]
     Dosage: 81 MG, DAILY
     Route: 048

REACTIONS (9)
  - RASH ERYTHEMATOUS [None]
  - PAIN [None]
  - PRESYNCOPE [None]
  - ACUTE MYOCARDIAL INFARCTION [None]
  - STRESS [None]
  - ASTHENIA [None]
  - BLOOD PRESSURE SYSTOLIC DECREASED [None]
  - ANAPHYLACTIC SHOCK [None]
  - HEART INJURY [None]
